FAERS Safety Report 6384590-8 (Version None)
Quarter: 2009Q3

REPORT INFORMATION
  Report Type: 
  Country: None (occurrence: None)
  Receive Date: 20090928
  Receipt Date: 20090916
  Transmission Date: 20100115
  Serious: Yes (Disabling)
  Sender: FDA-Public Use
  Company Number: GXKR2009IT10445

PATIENT
  Sex: Female

DRUGS (1)
  1. ATENOLOL + CHLORTHALIDONE (NGX)(ATENOLOL, CHLORTHALIDONE) [Suspect]

REACTIONS (1)
  - HYPONATRAEMIA [None]
